FAERS Safety Report 6712651-X (Version None)
Quarter: 2010Q2

REPORT INFORMATION
  Report Type: 
  Country: None (occurrence: None)
  Receive Date: 20100505
  Receipt Date: 20100505
  Transmission Date: 20101027
  Serious: Yes (Hospitalization)
  Sender: FDA-Public Use
  Company Number: None

PATIENT
  Age: 82 Year
  Sex: Female
  Weight: 52 kg

DRUGS (8)
  1. DIGOXIN [Suspect]
     Dosage: 0.125 MG DAILY ORAL
     Route: 048
  2. PRAVASTATIN [Concomitant]
  3. ALTACE [Concomitant]
  4. CALCITRIOL [Concomitant]
  5. FUROSEMIDE [Concomitant]
  6. SACTRAL [Concomitant]
  7. PLAVIX [Concomitant]
  8. ASPIRIN [Concomitant]

REACTIONS (1)
  - HEART RATE DECREASED [None]
